FAERS Safety Report 9271379 (Version 2)
Quarter: 2013Q2

REPORT INFORMATION
  Report Type: Spontaneous
  Country: US (occurrence: US)
  Receive Date: 20130506
  Receipt Date: 20130520
  Transmission Date: 20140414
  Serious: Yes (Other)
  Sender: FDA-Public Use
  Company Number: US-PFIZER INC-2013136211

PATIENT
  Age: 52 Year
  Sex: Male

DRUGS (1)
  1. SUTENT [Suspect]
     Indication: RENAL CELL CARCINOMA
     Dosage: 50 MG ONCE DAILY
     Dates: start: 20130327

REACTIONS (9)
  - Pulmonary embolism [Unknown]
  - Urinary tract disorder [Unknown]
  - Fungal infection [Unknown]
  - Nausea [Unknown]
  - Vomiting [Unknown]
  - Headache [Unknown]
  - Mass [Unknown]
  - Confusional state [Unknown]
  - Visual field defect [Unknown]
